FAERS Safety Report 8473942-8 (Version None)
Quarter: 2012Q2

REPORT INFORMATION
  Report Type: 
  Country: None (occurrence: None)
  Receive Date: 20120628
  Receipt Date: 20120216
  Transmission Date: 20120825
  Serious: Yes (Death)
  Sender: FDA-Public Use
  Company Number: US-MYLANLABS-2012S1003518

PATIENT
  Age: 52 Year
  Sex: Male

DRUGS (11)
  1. LIPITOR [Concomitant]
  2. CLOZAPINE [Suspect]
     Indication: SCHIZOPHRENIA
     Route: 048
     Dates: start: 20110301, end: 20120201
  3. GLYCOPYRROLATE [Concomitant]
  4. INSULIN [Concomitant]
  5. SYNTHROID [Concomitant]
  6. PRILOSEC [Concomitant]
  7. TEMAZEPAM [Concomitant]
  8. WELLBUTRIN XL [Concomitant]
  9. NEURONTIN [Concomitant]
  10. WARFARIN SODIUM [Concomitant]
  11. TRICOR [Concomitant]

REACTIONS (1)
  - MYOCARDIAL INFARCTION [None]
